FAERS Safety Report 5583508-5 (Version None)
Quarter: 2008Q1

REPORT INFORMATION
  Report Type: 
  Country: None (occurrence: None)
  Receive Date: 20080107
  Receipt Date: 20071212
  Transmission Date: 20080703
  Serious: No
  Sender: FDA-Public Use
  Company Number: US-BOEHRINGER INGELHEIM PHARMACEUTICALS, INC.-2007-BP-24888BP

PATIENT
  Sex: Female

DRUGS (4)
  1. SPIRIVA [Suspect]
     Indication: PNEUMONIA
     Route: 055
     Dates: start: 20070901, end: 20070901
  2. CHANTIX [Concomitant]
  3. DOXYCYCLINE [Concomitant]
  4. MUCINEX [Concomitant]

REACTIONS (1)
  - GASTROINTESTINAL DISORDER [None]
